FAERS Safety Report 22028909 (Version 1)
Quarter: 2023Q1

REPORT INFORMATION
  Report Type: Spontaneous
  Country: US (occurrence: US)
  Receive Date: 20230223
  Receipt Date: 20230223
  Transmission Date: 20230417
  Serious: No
  Sender: FDA-Public Use
  Company Number: US-SANOFI-01497172

PATIENT
  Sex: Female

DRUGS (2)
  1. DUPIXENT [Suspect]
     Active Substance: DUPILUMAB
     Indication: Nasal polyps
     Dosage: UNK
     Dates: start: 201908, end: 202210
  2. DUPIXENT [Suspect]
     Active Substance: DUPILUMAB
     Indication: Asthma

REACTIONS (9)
  - Abnormal sensation in eye [Unknown]
  - Dry skin [Unknown]
  - Muscle tightness [Unknown]
  - Cough [Unknown]
  - Myalgia [Unknown]
  - Vision blurred [Unknown]
  - Hypersensitivity [Unknown]
  - Dry eye [Unknown]
  - Nasal operation [Unknown]
